FAERS Safety Report 9853154 (Version 2)
Quarter: 2014Q1

REPORT INFORMATION
  Report Type: Spontaneous
  Country: IT (occurrence: IT)
  Receive Date: 20140129
  Receipt Date: 20140328
  Transmission Date: 20141002
  Serious: Yes (Hospitalization)
  Sender: FDA-Public Use
  Company Number: IT-B.I. PHARMACEUTICALS,INC./RIDGEFIELD-2014-BI-03435IT

PATIENT
  Age: 81 Year
  Sex: Female

DRUGS (12)
  1. PRADAXA [Suspect]
     Indication: ATRIAL FIBRILLATION
     Dosage: 220 MG
     Route: 048
     Dates: start: 20131101, end: 20140107
  2. PRADAXA [Suspect]
     Route: 048
     Dates: start: 20140107, end: 20140116
  3. PRADAXA [Suspect]
     Route: 048
  4. ARCOXIA [Suspect]
     Indication: BACK PAIN
     Dosage: 2 ANZ
     Route: 048
     Dates: start: 20131231, end: 20140107
  5. RANTIDINE [Concomitant]
     Route: 048
  6. IRBESARTAN [Concomitant]
     Indication: HYPERTENSION
     Route: 048
  7. ACARBOSE (GLUCOBAY) [Concomitant]
     Indication: TYPE 2 DIABETES MELLITUS
     Dosage: 250 MG
     Route: 048
  8. REPAGLINIDE [Concomitant]
     Indication: TYPE 2 DIABETES MELLITUS
     Route: 048
  9. FUROSEMIDE [Concomitant]
     Route: 048
  10. ALMARYTM [Concomitant]
     Indication: ATRIAL FIBRILLATION
     Route: 048
  11. ADESITRIN [Concomitant]
     Dosage: FORMULATION: PLASTER, TRANSDERMAL THERAPEUTIC SYSTEM; DOSE STRENGTH: 10 MG/24H; 1 POSOLOGIC UNIT
     Route: 062
  12. AMIODARONE [Concomitant]
     Route: 065

REACTIONS (2)
  - Renal failure acute [Recovered/Resolved]
  - Drug interaction [Recovered/Resolved]
